FAERS Safety Report 11841411 (Version 2)
Quarter: 2016Q1

REPORT INFORMATION
  Report Type: Spontaneous
  Country: FR (occurrence: FR)
  Receive Date: 20151216
  Receipt Date: 20160104
  Transmission Date: 20160526
  Serious: Yes (Life-Threatening, Hospitalization, Other)
  Sender: FDA-Public Use
  Company Number: FR-PFIZER INC-2015440190

PATIENT
  Age: 81 Year
  Sex: Male

DRUGS (9)
  1. CELEBREX [Suspect]
     Active Substance: CELECOXIB
     Indication: ANKYLOSING SPONDYLITIS
     Dosage: UNK
     Route: 048
     Dates: start: 201508, end: 20150912
  2. TAMSULOSIN [Concomitant]
     Active Substance: TAMSULOSIN
  3. BROMAZEPAM [Concomitant]
     Active Substance: BROMAZEPAM
  4. AVODART [Concomitant]
     Active Substance: DUTASTERIDE
  5. PROFENID [Suspect]
     Active Substance: KETOPROFEN
     Indication: PAIN
     Dosage: 100 MG, 2X/DAY
     Route: 048
     Dates: start: 201509
  6. PROPRANOLOL [Concomitant]
     Active Substance: PROPRANOLOL\PROPRANOLOL HYDROCHLORIDE
     Dosage: 0.5 UNK, 1X/DAY
  7. DOLIPRANE [Concomitant]
     Active Substance: ACETAMINOPHEN
  8. CELEBREX [Suspect]
     Active Substance: CELECOXIB
     Indication: ARTHRALGIA
  9. PAROXETINE [Concomitant]
     Active Substance: PAROXETINE\PAROXETINE HYDROCHLORIDE
     Dosage: 0.5 DF, 1X/DAY

REACTIONS (5)
  - Diarrhoea haemorrhagic [Unknown]
  - Atrial fibrillation [Recovered/Resolved]
  - Anaemia [Unknown]
  - Ulcer haemorrhage [Recovered/Resolved with Sequelae]
  - Shock haemorrhagic [Recovered/Resolved with Sequelae]

NARRATIVE: CASE EVENT DATE: 20150917
